FAERS Safety Report 12289583 (Version 1)
Quarter: 2016Q2

REPORT INFORMATION
  Report Type: Spontaneous
  Country: US (occurrence: None)
  Receive Date: 20160420
  Receipt Date: 20160420
  Transmission Date: 20160815
  Serious: Yes (Hospitalization)
  Sender: FDA-Public Use
  Company Number: None

PATIENT
  Age: 68 Year
  Sex: Female
  Weight: 59.5 kg

DRUGS (15)
  1. CARISOPRODOL. [Concomitant]
     Active Substance: CARISOPRODOL
  2. HYDROCODONE [Concomitant]
     Active Substance: HYDROCODONE
  3. LACTULOSE. [Concomitant]
     Active Substance: LACTULOSE
  4. OMEPRAZOLE. [Concomitant]
     Active Substance: OMEPRAZOLE
  5. PROCTOZONE [Concomitant]
     Active Substance: HYDROCORTISONE
  6. GENTAMICIN. [Concomitant]
     Active Substance: GENTAMICIN
  7. HARVONI [Suspect]
     Active Substance: LEDIPASVIR\SOFOSBUVIR
     Indication: HEPATITIS C
     Dosage: 90MG/400MG QD ORAL
     Route: 048
     Dates: start: 20150404, end: 20150919
  8. BACTROBAN [Concomitant]
     Active Substance: MUPIROCIN\MUPIROCIN CALCIUM
  9. FLUTICASONE [Concomitant]
     Active Substance: FLUTICASONE\FLUTICASONE PROPIONATE
  10. ZANAFLEX [Concomitant]
     Active Substance: TIZANIDINE HYDROCHLORIDE
  11. PANTOPRAZOLE [Concomitant]
     Active Substance: PANTOPRAZOLE SODIUM
  12. SEROQUEL [Concomitant]
     Active Substance: QUETIAPINE FUMARATE
  13. TRAZODONE [Concomitant]
     Active Substance: TRAZODONE HYDROCHLORIDE
  14. TRANXENE T-TAB [Concomitant]
     Active Substance: CLORAZEPATE DIPOTASSIUM
  15. DOXYLAMINE [Concomitant]
     Active Substance: DOXYLAMINE

REACTIONS (2)
  - Hepatic encephalopathy [None]
  - Asterixis [None]

NARRATIVE: CASE EVENT DATE: 20150615
